FAERS Safety Report 7949989-4 (Version None)
Quarter: 2011Q4

REPORT INFORMATION
  Report Type: 
  Country: None (occurrence: None)
  Receive Date: 20111130
  Receipt Date: 20111121
  Transmission Date: 20120403
  Serious: Yes (Other)
  Sender: FDA-Public Use
  Company Number: GB-BRISTOL-MYERS SQUIBB COMPANY-16240293

PATIENT
  Age: 57 Year
  Sex: Male
  Weight: 87 kg

DRUGS (4)
  1. ZOPICLONE [Concomitant]
     Dates: start: 20111111
  2. CANDESARTAN CILEXETIL [Concomitant]
     Dates: start: 20110905
  3. PRAVASTATIN SODIUM [Suspect]
     Dates: start: 20111005
  4. CO-DYDRAMOL [Concomitant]
     Dates: start: 20111108

REACTIONS (2)
  - HYPERHIDROSIS [None]
  - DIZZINESS [None]
